FAERS Safety Report 9466254 (Version 1)
Quarter: 2013Q3

REPORT INFORMATION
  Report Type: Spontaneous
  Country: US (occurrence: US)
  Receive Date: 20130820
  Receipt Date: 20130820
  Transmission Date: 20140515
  Serious: Yes (Other)
  Sender: FDA-Public Use
  Company Number: US-PFIZER INC-2013237867

PATIENT
  Age: 54 Year
  Sex: Female
  Weight: 90.7 kg

DRUGS (5)
  1. NITROSTAT [Suspect]
     Indication: ANGINA PECTORIS
     Dosage: AS NEEDED(MAXIMUM 4 TABLETS)
  2. METFORMIN [Suspect]
     Indication: TYPE 2 DIABETES MELLITUS
     Dosage: 1000 MG, 2X/DAY
  3. GLIMEPIRIDE [Suspect]
     Indication: TYPE 2 DIABETES MELLITUS
     Dosage: 4 MG, 1X/DAY
  4. SIMVASTATIN [Concomitant]
     Indication: BLOOD CHOLESTEROL ABNORMAL
     Dosage: 40 MG, 1X/DAY
  5. GEMFIBROZIL [Concomitant]
     Indication: BLOOD CHOLESTEROL ABNORMAL
     Dosage: 600 MG, 2X/DAY

REACTIONS (7)
  - Myocardial infarction [Unknown]
  - Myocardial infarction [Unknown]
  - Hypertrophic cardiomyopathy [Unknown]
  - Chest pain [Unknown]
  - Blood glucose increased [Unknown]
  - Stress [Unknown]
  - Emotional disorder [Unknown]
